FAERS Safety Report 8075562-6 (Version None)
Quarter: 2012Q1

REPORT INFORMATION
  Report Type: 
  Country: None (occurrence: None)
  Receive Date: 20120127
  Receipt Date: 20120119
  Transmission Date: 20120608
  Serious: Yes (Hospitalization)
  Sender: FDA-Public Use
  Company Number: KR-BRISTOL-MYERS SQUIBB COMPANY-16327140

PATIENT
  Age: 59 Year
  Sex: Male
  Weight: 44 kg

DRUGS (3)
  1. PACLITAXEL [Suspect]
     Indication: GASTRIC CANCER
     Dosage: LAST RECEIVED ON 14DEC11
     Route: 042
     Dates: start: 20111207, end: 20120106
  2. MAGNESIUM OXIDE [Concomitant]
     Dates: start: 20110725
  3. MEGACE [Concomitant]
     Dates: start: 20110820

REACTIONS (5)
  - ANAEMIA [None]
  - ODYNOPHAGIA [None]
  - NEUTROPENIA [None]
  - PNEUMONIA [None]
  - MOUTH ULCERATION [None]
